FAERS Safety Report 21529419 (Version 2)
Quarter: 2022Q4

REPORT INFORMATION
  Report Type: Other
  Country: KE (occurrence: KE)
  Receive Date: 20221031
  Receipt Date: 20221104
  Transmission Date: 20230113
  Serious: Yes (Other)
  Sender: FDA-Public Use
  Company Number: KE-002147023-NVSC2022KE242598

PATIENT
  Age: 67 Year
  Sex: Male
  Weight: 93 kg

DRUGS (2)
  1. RANIBIZUMAB [Suspect]
     Active Substance: RANIBIZUMAB
     Indication: Product used for unknown indication
     Dosage: 0.5 MG, QMO (VIAL)
     Route: 047
     Dates: start: 20220830
  2. RANIBIZUMAB [Suspect]
     Active Substance: RANIBIZUMAB
     Dosage: UNK (VIAL)
     Route: 065
     Dates: start: 20221021

REACTIONS (1)
  - Ocular hyperaemia [Recovered/Resolved]

NARRATIVE: CASE EVENT DATE: 20221024
